FAERS Safety Report 8224088-5 (Version None)
Quarter: 2012Q1

REPORT INFORMATION
  Report Type: 
  Country: None (occurrence: None)
  Receive Date: 20120321
  Receipt Date: 20120320
  Transmission Date: 20120608
  Serious: Yes (Death, Hospitalization, Other)
  Sender: FDA-Public Use
  Company Number: PHHY2011CA110166

PATIENT
  Sex: Female

DRUGS (12)
  1. LEVOTHYROXINE SODIUM [Concomitant]
  2. DOMPERIDONE [Concomitant]
  3. LEVOCARB [Concomitant]
     Dosage: 100/20 MG
  4. CRESTOR [Concomitant]
  5. SOFLAX [Concomitant]
  6. CLOZARIL [Suspect]
     Indication: PSYCHOTIC DISORDER
     Dosage: 25 MG, UNK
     Route: 048
     Dates: start: 20100416
  7. VITAMIN D [Concomitant]
  8. CLOZARIL [Suspect]
     Dates: start: 20110419, end: 20120311
  9. MIRTAZAPINE [Concomitant]
  10. SENOKOT [Concomitant]
  11. ARICEPT [Concomitant]
  12. LACTULOSE [Concomitant]

REACTIONS (4)
  - DEATH [None]
  - URINARY TRACT INFECTION [None]
  - HYPOPHAGIA [None]
  - PARKINSON'S DISEASE [None]
